FAERS Safety Report 5082583-4 (Version None)
Quarter: 2006Q3

REPORT INFORMATION
  Report Type: 
  Country: None (occurrence: None)
  Receive Date: 20060817
  Receipt Date: 20060807
  Transmission Date: 20061208
  Serious: Yes (Hospitalization)
  Sender: FDA-Public Use
  Company Number: FR-BRISTOL-MYERS SQUIBB COMPANY-13471461

PATIENT
  Age: 83 Year
  Sex: Male

DRUGS (9)
  1. VASTEN TABS [Suspect]
     Route: 048
     Dates: end: 20060515
  2. PREVISCAN [Suspect]
     Route: 048
     Dates: start: 19990101, end: 20060510
  3. CORVASAL [Concomitant]
     Route: 048
     Dates: end: 20060515
  4. COVERSYL [Concomitant]
     Route: 048
     Dates: end: 20060510
  5. LASILIX [Concomitant]
     Route: 048
  6. AMARYL [Concomitant]
     Route: 048
     Dates: end: 20060509
  7. GLUCOPHAGE [Concomitant]
     Route: 048
     Dates: end: 20060509
  8. DIASTABOL [Concomitant]
     Dates: end: 20060509
  9. CARDENSIEL [Concomitant]
     Route: 048
     Dates: start: 20060101

REACTIONS (2)
  - ACUTE CORONARY SYNDROME [None]
  - RENAL FAILURE CHRONIC [None]
